FAERS Safety Report 23998860 (Version 1)
Quarter: 2024Q2

REPORT INFORMATION
  Report Type: Spontaneous
  Country: US (occurrence: US)
  Receive Date: 20240621
  Receipt Date: 20240621
  Transmission Date: 20240716
  Serious: Yes (Other)
  Sender: FDA-Public Use
  Company Number: US-BAYER-2024A086944

PATIENT
  Age: 22 Year
  Sex: Female

DRUGS (2)
  1. ALKA-SELTZER HANGOVER RELIEF [Suspect]
     Active Substance: ASPIRIN\CAFFEINE
     Indication: Gastrointestinal disorder
     Dosage: 2 DF
     Route: 048
     Dates: start: 20240607, end: 20240607
  2. ALKA-SELTZER HANGOVER RELIEF [Suspect]
     Active Substance: ASPIRIN\CAFFEINE
     Indication: Hangover

REACTIONS (3)
  - Heart rate increased [Unknown]
  - Dizziness [Unknown]
  - Nausea [Unknown]
